FAERS Safety Report 7361444-1 (Version None)
Quarter: 2011Q1

REPORT INFORMATION
  Report Type: 
  Country: None (occurrence: None)
  Receive Date: 20110310
  Receipt Date: 20110225
  Transmission Date: 20110831
  Serious: Yes (Hospitalization, Disabling)
  Sender: FDA-Public Use
  Company Number: 025282

PATIENT
  Age: 64 Year
  Sex: Female

DRUGS (13)
  1. COUMADIN [Concomitant]
  2. ASACOL [Concomitant]
  3. FERROUS SULFATE TAB [Concomitant]
  4. PRILOSEC [Concomitant]
  5. CIMZIA [Suspect]
     Dosage: (400 MG 1X/2 WEEKS SUBCUTANEOUS)
     Route: 058
     Dates: start: 20100624, end: 20101021
  6. ALBUMIN (HUMAN) [Concomitant]
  7. SODIUM BICARBONATE [Concomitant]
  8. FOSAMAX [Concomitant]
  9. PREDNISONE [Concomitant]
  10. IMURAN [Concomitant]
  11. NIFEREX /01214501/ [Concomitant]
  12. LORTAB [Concomitant]
  13. ASPIRIN [Concomitant]

REACTIONS (64)
  - HEPATITIS CHOLESTATIC [None]
  - STAPHYLOCOCCUS TEST POSITIVE [None]
  - FAECALOMA [None]
  - SCAR [None]
  - HAEMATOCHEZIA [None]
  - RETCHING [None]
  - DYSURIA [None]
  - CARDIAC FAILURE [None]
  - RASH ERYTHEMATOUS [None]
  - PULMONARY FUNCTION TEST INCREASED [None]
  - CARDIAC DISORDER [None]
  - SEPTIC SHOCK [None]
  - FREQUENT BOWEL MOVEMENTS [None]
  - NEPHROLITHIASIS [None]
  - HYDRONEPHROSIS [None]
  - NORMOCHROMIC NORMOCYTIC ANAEMIA [None]
  - ARTERIOSCLEROSIS [None]
  - PRURITUS [None]
  - RENAL TUBULAR ACIDOSIS [None]
  - NAUSEA [None]
  - TACHYCARDIA [None]
  - LEG AMPUTATION [None]
  - HYPOTHERMIA [None]
  - GENERALISED OEDEMA [None]
  - LUNG INFILTRATION [None]
  - BLOOD BICARBONATE DECREASED [None]
  - C-REACTIVE PROTEIN INCREASED [None]
  - WEIGHT DECREASED [None]
  - ENTEROVESICAL FISTULA [None]
  - LARGE INTESTINE PERFORATION [None]
  - PLEURAL EFFUSION [None]
  - SEPTIC EMBOLUS [None]
  - CLOSTRIDIAL INFECTION [None]
  - ASTHENIA [None]
  - RHABDOMYOLYSIS [None]
  - PERIPHERAL ISCHAEMIA [None]
  - LEUKOCYTOSIS [None]
  - PLATELET COUNT INCREASED [None]
  - ACIDOSIS [None]
  - VOMITING [None]
  - COLITIS ULCERATIVE [None]
  - PROCEDURAL HYPOTENSION [None]
  - COMPARTMENT SYNDROME [None]
  - ARTERIAL THROMBOSIS LIMB [None]
  - CIRCULATORY COLLAPSE [None]
  - ATRIAL FIBRILLATION [None]
  - THROMBOCYTOPENIA [None]
  - DISSEMINATED INTRAVASCULAR COAGULATION [None]
  - DEEP VEIN THROMBOSIS [None]
  - RENAL FAILURE ACUTE [None]
  - URINARY TRACT INFECTION [None]
  - RENAL TUBULAR NECROSIS [None]
  - EXTREMITY NECROSIS [None]
  - CHOLELITHIASIS [None]
  - VENA CAVA THROMBOSIS [None]
  - ASCITES [None]
  - RED BLOOD CELL SCHISTOCYTES PRESENT [None]
  - ECCHYMOSIS [None]
  - PNEUMOTHORAX [None]
  - GANGRENE [None]
  - HYPOTENSION [None]
  - DYSPHAGIA [None]
  - MYOPATHY [None]
  - SKIN ULCER [None]
